FAERS Safety Report 12195833 (Version 1)
Quarter: 2016Q1

REPORT INFORMATION
  Report Type: Spontaneous
  Country: CA (occurrence: CA)
  Receive Date: 20160321
  Receipt Date: 20160321
  Transmission Date: 20160526
  Serious: Yes (Other)
  Sender: FDA-Public Use
  Company Number: CA-SYMPLMED PHARMACEUTICALS-2016SYMPLMED000172

PATIENT

DRUGS (6)
  1. COVERSYL PLUS [Suspect]
     Active Substance: INDAPAMIDE\PERINDOPRIL
     Indication: HYPERTENSION
     Dosage: 1.25/4 MG TABLET, QD
     Route: 048
     Dates: start: 20100316, end: 20100327
  2. VENTOLIN [Concomitant]
     Active Substance: ALBUTEROL SULFATE
     Indication: ASTHMA
  3. COVERSYL [Suspect]
     Active Substance: PERINDOPRIL
     Indication: HYPERTENSION
     Dosage: 4 MG, QD
     Route: 048
     Dates: start: 20100329, end: 20100415
  4. COVERSYL [Suspect]
     Active Substance: PERINDOPRIL
     Dosage: 2 MG, QD
     Route: 048
     Dates: start: 20100416, end: 20120330
  5. DIDROCAL [Concomitant]
     Active Substance: CALCIUM CARBONATE\ETIDRONATE DISODIUM
     Indication: OSTEOPOROSIS
  6. FLOVENT [Concomitant]
     Active Substance: FLUTICASONE PROPIONATE
     Indication: ASTHMA

REACTIONS (7)
  - Fall [Recovered/Resolved]
  - Cough [Recovered/Resolved]
  - Dehydration [Unknown]
  - Contusion [Recovered/Resolved]
  - Syncope [Recovered/Resolved]
  - Intentional product misuse [Unknown]
  - Hypotension [Recovered/Resolved]

NARRATIVE: CASE EVENT DATE: 20100327
